FAERS Safety Report 26022509 (Version 2)
Quarter: 2025Q4

REPORT INFORMATION
  Report Type: Spontaneous
  Country: US (occurrence: US)
  Receive Date: 20251110
  Receipt Date: 20251210
  Transmission Date: 20260118
  Serious: Yes (Death, Other)
  Sender: AMGEN
  Company Number: US-AMGEN-USASP2025218748

PATIENT

DRUGS (6)
  1. XGEVA [Suspect]
     Active Substance: DENOSUMAB
     Indication: Osteosarcoma recurrent
     Dosage: 120 MILLIGRAM
     Route: 058
  2. XGEVA [Suspect]
     Active Substance: DENOSUMAB
     Indication: Osteosarcoma
     Dosage: 120 MILLIGRAM, ON DAYS 8
     Route: 058
  3. XGEVA [Suspect]
     Active Substance: DENOSUMAB
     Dosage: 120 MILLIGRAM, ON DAYS 15
     Route: 058
  4. XGEVA [Suspect]
     Active Substance: DENOSUMAB
     Dosage: 120 MILLIGRAM, Q4WK
     Route: 058
  5. CALCIUM [Concomitant]
     Active Substance: CALCIUM
     Dosage: UNK, 500 MG DAILY OR GREATER
  6. VITAMIN D [Concomitant]
     Active Substance: VITAMIN D NOS
     Dosage: UNK, 400 IU OR GREATER

REACTIONS (30)
  - Hypophosphataemia [Unknown]
  - Osteosarcoma recurrent [Fatal]
  - Respiratory failure [Fatal]
  - Hypocalcaemia [Unknown]
  - Hypercalcaemia [Unknown]
  - Spinal cord compression [Unknown]
  - Hypoxia [Unknown]
  - Renal impairment [Unknown]
  - Pulmonary oedema [Unknown]
  - Embolism [Unknown]
  - Pneumonia [Unknown]
  - Non-cardiac chest pain [Unknown]
  - Lymphocyte count decreased [Unknown]
  - Weight increased [Unknown]
  - Weight decreased [Unknown]
  - Hyperglycaemia [Unknown]
  - Obesity [Unknown]
  - Pleural effusion [Unknown]
  - Pleuritic pain [Unknown]
  - Decreased appetite [Unknown]
  - Vomiting [Unknown]
  - Anaemia [Unknown]
  - Nausea [Unknown]
  - Dyspnoea [Unknown]
  - Hypokalaemia [Unknown]
  - Osteosarcoma [Unknown]
  - Sinus tachycardia [Unknown]
  - Haematoma [Unknown]
  - Pyrexia [Unknown]
  - Off label use [Unknown]
